FAERS Safety Report 6524240-0 (Version None)
Quarter: 2009Q4

REPORT INFORMATION
  Report Type: 
  Country: None (occurrence: None)
  Receive Date: 20091231
  Receipt Date: 20091230
  Transmission Date: 20100525
  Serious: Yes (Life-Threatening, Hospitalization, Disabling)
  Sender: FDA-Public Use
  Company Number: US-B.I. PHARMACEUTICALS,INC./RIDGEFIELD-2009-BP-14975BP

PATIENT
  Sex: Female

DRUGS (12)
  1. SPIRIVA [Suspect]
     Indication: CHRONIC OBSTRUCTIVE PULMONARY DISEASE
     Dosage: 18 MCG
     Route: 055
     Dates: start: 20081001
  2. SPIRIVA [Suspect]
     Indication: ASTHMA
     Dosage: 18 MCG
     Route: 055
     Dates: start: 20060101, end: 20080101
  3. SYMBICORT [Concomitant]
     Indication: CHRONIC OBSTRUCTIVE PULMONARY DISEASE
  4. SYMBICORT [Concomitant]
     Indication: ASTHMA
  5. ISOSORBIDE [Concomitant]
     Indication: ANGINA PECTORIS
  6. CARDIZEM [Concomitant]
     Indication: TACHYCARDIA
  7. NITROGLYCERINE TABLETS [Concomitant]
     Indication: ANGINA PECTORIS
  8. XOPENEX [Concomitant]
     Indication: CHRONIC OBSTRUCTIVE PULMONARY DISEASE
  9. XOPENEX [Concomitant]
     Indication: ASTHMA
  10. PRAVASTATIN [Concomitant]
     Indication: BLOOD CHOLESTEROL INCREASED
  11. O2 [Concomitant]
     Indication: CHRONIC OBSTRUCTIVE PULMONARY DISEASE
     Dates: start: 20090413
  12. O2 [Concomitant]
     Indication: OXYGEN SATURATION

REACTIONS (13)
  - ANOXIC ENCEPHALOPATHY [None]
  - BLOOD PH DECREASED [None]
  - CARDIAC ARREST [None]
  - CHILLS [None]
  - DYSGRAPHIA [None]
  - DYSPNOEA [None]
  - HYPERSENSITIVITY [None]
  - MYOCARDIAL INFARCTION [None]
  - OXYGEN SATURATION DECREASED [None]
  - PNEUMONIA [None]
  - RESPIRATORY ARREST [None]
  - SLEEP APNOEA SYNDROME [None]
  - SPEECH DISORDER [None]
